FAERS Safety Report 15153801 (Version 2)
Quarter: 2018Q3

REPORT INFORMATION
  Report Type: Spontaneous
  Country: US (occurrence: US)
  Receive Date: 20180717
  Receipt Date: 20180828
  Transmission Date: 20181010
  Serious: No
  Sender: FDA-Public Use
  Company Number: US-SA-2018SA190351

PATIENT
  Age: 83 Year
  Sex: Male
  Weight: 66 kg

DRUGS (4)
  1. REPATHA [Concomitant]
     Active Substance: EVOLOCUMAB
     Dosage: UNK
  2. ALIROCUMAB PREFILLED PEN [Suspect]
     Active Substance: ALIROCUMAB
     Indication: BLOOD CHOLESTEROL INCREASED
     Dosage: 75 MG, QOW
     Route: 058
     Dates: start: 201807
  3. PRALUENT [Suspect]
     Active Substance: ALIROCUMAB
     Indication: BLOOD CHOLESTEROL INCREASED
     Dosage: 75 MG, QOW
     Route: 058
     Dates: start: 201807
  4. REPATHA [Concomitant]
     Active Substance: EVOLOCUMAB
     Dosage: UNK

REACTIONS (2)
  - Drug dose omission [Unknown]
  - Device issue [Unknown]
